FAERS Safety Report 5496874-6 (Version None)
Quarter: 2007Q4

REPORT INFORMATION
  Report Type: 
  Country: None (occurrence: None)
  Receive Date: 20071025
  Receipt Date: 20071004
  Transmission Date: 20080405
  Serious: No
  Sender: FDA-Public Use
  Company Number: A0677393A

PATIENT
  Age: 50 Year
  Sex: Female

DRUGS (6)
  1. ADVAIR DISKUS 100/50 [Suspect]
     Indication: ASTHMA
     Dosage: 1PUFF TWICE PER DAY
     Route: 055
     Dates: start: 20020101, end: 20070808
  2. VENTOLIN [Suspect]
     Indication: ASTHMA
     Dosage: 1PUFF TWICE PER DAY
     Route: 055
     Dates: start: 20030701
  3. FOSAMAX [Concomitant]
  4. SEREVENT [Concomitant]
  5. THEOPHYLLINE [Concomitant]
  6. INTAL [Concomitant]

REACTIONS (6)
  - DYSPHONIA [None]
  - GLOSSODYNIA [None]
  - OSTEOPENIA [None]
  - OSTEOPOROSIS [None]
  - PHARMACEUTICAL PRODUCT COMPLAINT [None]
  - THERMAL BURN [None]
